FAERS Safety Report 18732969 (Version 1)
Quarter: 2021Q1

REPORT INFORMATION
  Report Type: Spontaneous
  Country: FR (occurrence: FR)
  Receive Date: 20210112
  Receipt Date: 20210112
  Transmission Date: 20210419
  Serious: Yes (Death)
  Sender: FDA-Public Use
  Company Number: FR-NOVITIUMPHARMA-2021FRNVP00002

PATIENT
  Age: 57 Year
  Sex: Male
  Weight: 58 kg

DRUGS (5)
  1. NEVIRAPINE. [Concomitant]
     Active Substance: NEVIRAPINE
  2. 4?METHYLPENTEDRONE [Concomitant]
     Active Substance: 4-METHYLPENTEDRONE
  3. BROMAZEPAM [Concomitant]
     Active Substance: BROMAZEPAM
  4. SILDENAFIL CITRATE. [Suspect]
     Active Substance: SILDENAFIL CITRATE
     Indication: PRODUCT USED FOR UNKNOWN INDICATION
  5. COCAINE [Concomitant]
     Active Substance: COCAINE

REACTIONS (1)
  - Toxicity to various agents [Fatal]
